FAERS Safety Report 8838875 (Version 1)
Quarter: 2012Q4

REPORT INFORMATION
  Report Type: 
  Country: GB (occurrence: GB)
  Receive Date: 20121015
  Receipt Date: 20121015
  Transmission Date: 20130627
  Serious: Yes (Hospitalization)
  Sender: FDA-Public Use
  Company Number: GB-AMGEN-GBRSP2012058959

PATIENT
  Age: 59 Year
  Sex: Male
  Weight: 126 kg

DRUGS (21)
  1. ENBREL [Suspect]
     Indication: RHEUMATOID ARTHRITIS
     Dosage: 50 mg, weekly
     Route: 058
     Dates: start: 20120420, end: 20120519
  2. ACETYLSALICYLIC ACID [Concomitant]
     Dosage: 75 mg, 1x/day
     Route: 048
  3. INSULIN LISPRO [Concomitant]
     Dosage: UNK UNK, tid
     Route: 058
  4. AMLODIPINE [Concomitant]
     Dosage: 5 mg, UNK
     Route: 048
  5. ATORVASTATIN [Concomitant]
     Dosage: 40 mg, 1x/day
  6. BISOPROLOL [Concomitant]
     Dosage: 7.5 mg, 1x/day
     Route: 048
  7. CANDESARTAN [Concomitant]
     Dosage: 2 mg, 1x/day
     Route: 048
  8. NICORANDIL [Concomitant]
     Dosage: 30 mg, 2x/day
     Route: 048
  9. ISOSORBIDE MONONITRATE [Concomitant]
     Dosage: 60 mg, 1x/day
  10. FUROSEMIDE [Concomitant]
     Dosage: 40 mg, 1x/day
     Route: 048
  11. NIZATIDINE [Concomitant]
     Dosage: 150 mg, 2x/day
     Route: 048
  12. MST                                /00021210/ [Concomitant]
     Dosage: 30 mg, 2x/day
     Route: 048
  13. ORAMORPH [Concomitant]
     Dosage: 5 ml, as needed (10mg/5ml)
  14. PARACETAMOL [Concomitant]
     Dosage: 1 g, as needed
  15. PIZOTIFEN [Concomitant]
     Dosage: 500 mg, 3x/day
  16. GTN [Concomitant]
     Dosage: 400 mcg/dose - 2 puffs as required
  17. SALBUTAMOL [Concomitant]
     Dosage: 100 mcg/dose - 2 puffs as required
  18. AMITRIPTYLINE [Concomitant]
     Dosage: 20 mg, 1x/day (night)
     Route: 048
  19. GABAPENTIN [Concomitant]
     Dosage: 300 mg, 3x/day
     Route: 048
  20. RIVAROXABAN [Concomitant]
     Dosage: 20 ug, 1x/day
     Route: 048
     Dates: start: 201207
  21. LIRAGLUTIDE [Concomitant]
     Dosage: 2.5 mg, UNK
     Route: 058

REACTIONS (4)
  - Pyrexia [Recovered/Resolved]
  - Staphylococcal bacteraemia [Recovered/Resolved]
  - Chest pain [Unknown]
  - Catheter site cellulitis [Recovered/Resolved]
